FAERS Safety Report 8977814 (Version 1)
Quarter: 2012Q4

REPORT INFORMATION
  Report Type: 
  Country: JP (occurrence: JP)
  Receive Date: 20121219
  Receipt Date: 20121219
  Transmission Date: 20130627
  Serious: Yes (Other)
  Sender: FDA-Public Use
  Company Number: JP-TEVA-339033USA

PATIENT
  Age: 39 Year
  Sex: Male

DRUGS (2)
  1. BENDAMUSTINE [Suspect]
     Indication: B-CELL LYMPHOMA
     Dosage: 90 mg/m2, unknown/D
     Route: 042
     Dates: start: 20110511, end: 20110930
  2. GRANISETRON HCL [Concomitant]
     Dates: start: 20110609

REACTIONS (1)
  - Angiopathy [Recovered/Resolved]
